FAERS Safety Report 4570520-8 (Version None)
Quarter: 2005Q1

REPORT INFORMATION
  Report Type: 
  Country: None (occurrence: None)
  Receive Date: 20050204
  Receipt Date: 20050124
  Transmission Date: 20050727
  Serious: Yes (Disabling)
  Sender: FDA-Public Use
  Company Number: PHBS2005PE01316

PATIENT
  Age: 77 Year
  Sex: Male

DRUGS (2)
  1. LESCOL XL [Suspect]
     Indication: HYPERCHOLESTEROLAEMIA
     Dosage: 80 MG, QD
     Route: 048
     Dates: start: 20050115, end: 20050120
  2. NORVASC [Concomitant]
     Indication: HYPERTENSION
     Dosage: 5 MG, QD
     Route: 065

REACTIONS (3)
  - DIZZINESS [None]
  - FATIGUE [None]
  - SOMNOLENCE [None]
